FAERS Safety Report 22079839 (Version 3)
Quarter: 2023Q2

REPORT INFORMATION
  Report Type: Report from Study
  Country: US (occurrence: US)
  Receive Date: 20230309
  Receipt Date: 20230504
  Transmission Date: 20230721
  Serious: Yes (Other)
  Sender: FDA-Public Use
  Company Number: US-ABBVIE-4331915

PATIENT
  Sex: Male

DRUGS (4)
  1. VENCLEXTA [Suspect]
     Active Substance: VENETOCLAX
     Indication: Plasma cell myeloma
     Dosage: TAKE 1 TABLET BY MOUTH ON DAY 1?FORM STRENGTH: 100 MILLIGRAM
     Route: 048
  2. VENCLEXTA [Suspect]
     Active Substance: VENETOCLAX
     Indication: Plasma cell myeloma
     Dosage: TAKE 2 TABLET(S) BY MOUTH ON DAY 2
     Route: 048
  3. VENCLEXTA [Suspect]
     Active Substance: VENETOCLAX
     Indication: Plasma cell myeloma
     Dosage: CYCLE 2-6: TAKE 1 TABLET BY MOUTH DAILY FOR 21 DAYS THEN HOLD FOR 7 DAYS BEFORE RESTARTING. FORM ...
     Route: 048
  4. VENCLEXTA [Suspect]
     Active Substance: VENETOCLAX
     Indication: Plasma cell myeloma
     Dosage: TAKE 4 TABLET(S) BY MOUTH ON DAYS 3-21
     Route: 048

REACTIONS (2)
  - Leukaemia [Unknown]
  - Off label use [Unknown]
